FAERS Safety Report 17898820 (Version 1)
Quarter: 2020Q2

REPORT INFORMATION
  Report Type: Spontaneous
  Country: CN (occurrence: CN)
  Receive Date: 20200615
  Receipt Date: 20200615
  Transmission Date: 20200714
  Serious: Yes (Other)
  Sender: FDA-Public Use
  Company Number: CN-BAYER-2020-113957

PATIENT
  Age: 43 Year
  Sex: Female

DRUGS (1)
  1. STIVARGA [Suspect]
     Active Substance: REGORAFENIB
     Indication: ADENOCARCINOMA OF COLON
     Dosage: 80 MG, QD
     Route: 048
     Dates: start: 20180808

REACTIONS (5)
  - Pelvic mass [None]
  - Colon cancer [None]
  - Asthenia [None]
  - Off label use [None]
  - Decreased appetite [None]

NARRATIVE: CASE EVENT DATE: 20180808
